FAERS Safety Report 6129700-2 (Version None)
Quarter: 2009Q1

REPORT INFORMATION
  Report Type: 
  Country: None (occurrence: None)
  Receive Date: 20090324
  Receipt Date: 20090324
  Transmission Date: 20090719
  Serious: Yes (Other)
  Sender: FDA-Public Use
  Company Number: A0774726A

PATIENT
  Age: 53 Year
  Sex: Male

DRUGS (6)
  1. ALLI [Suspect]
     Indication: WEIGHT LOSS DIET
     Route: 048
     Dates: start: 20090201
  2. LIPITOR [Concomitant]
     Indication: BLOOD CHOLESTEROL INCREASED
     Route: 048
  3. MULTI-VITAMIN [Concomitant]
     Route: 048
  4. L-LYSINE [Concomitant]
     Route: 048
  5. GARLIC TABLETS [Concomitant]
     Route: 048
  6. ADVIL [Concomitant]
     Indication: PAIN
     Route: 048

REACTIONS (3)
  - DIARRHOEA [None]
  - HAEMATOCHEZIA [None]
  - RECTAL HAEMORRHAGE [None]
